FAERS Safety Report 8516494-6 (Version None)
Quarter: 2012Q3

REPORT INFORMATION
  Report Type: 
  Country: None (occurrence: None)
  Receive Date: 20120718
  Receipt Date: 20120712
  Transmission Date: 20120928
  Serious: No
  Sender: FDA-Public Use
  Company Number: US-PFIZER INC-2012168817

PATIENT
  Sex: Female

DRUGS (3)
  1. ESTRING [Suspect]
     Indication: HERPES ZOSTER
     Dosage: UNK
     Route: 067
  2. ESTRACE [Concomitant]
     Indication: MENOPAUSE
     Dosage: UNK
  3. TESTOSTERONE [Concomitant]
     Indication: HORMONE REPLACEMENT THERAPY
     Dosage: UNK, 1X/DAY

REACTIONS (2)
  - DRUG INEFFECTIVE FOR UNAPPROVED INDICATION [None]
  - HERPES ZOSTER [None]
